FAERS Safety Report 24602546 (Version 1)
Quarter: 2024Q4

REPORT INFORMATION
  Report Type: Report from Study
  Country: US (occurrence: US)
  Receive Date: 20241111
  Receipt Date: 20241111
  Transmission Date: 20250115
  Serious: Yes (Other)
  Sender: UCB
  Company Number: US-UCBSA-2024041656

PATIENT
  Sex: Female

DRUGS (2)
  1. BRIVARACETAM [Suspect]
     Active Substance: BRIVARACETAM
     Indication: Seizure
     Dosage: 200 MILLIGRAM, 2X/DAY (BID)
  2. BRIVARACETAM [Suspect]
     Active Substance: BRIVARACETAM
     Dosage: 100 MILLIGRAM, 2X/DAY (BID)

REACTIONS (10)
  - Seizure [Not Recovered/Not Resolved]
  - Osteoporosis [Not Recovered/Not Resolved]
  - Menopause [Not Recovered/Not Resolved]
  - Gait disturbance [Not Recovered/Not Resolved]
  - Muscular weakness [Not Recovered/Not Resolved]
  - Insomnia [Not Recovered/Not Resolved]
  - Therapeutic product effect incomplete [Unknown]
  - Overdose [Unknown]
  - Therapy interrupted [Unknown]
  - Product availability issue [Unknown]

NARRATIVE: CASE EVENT DATE: 20240101
